FAERS Safety Report 7403463-2 (Version None)
Quarter: 2011Q2

REPORT INFORMATION
  Report Type: 
  Country: None (occurrence: None)
  Receive Date: 20110408
  Receipt Date: 20110401
  Transmission Date: 20111010
  Serious: Yes (Other)
  Sender: FDA-Public Use
  Company Number: B0710198A

PATIENT
  Sex: Female

DRUGS (3)
  1. BIPROFENID [Suspect]
     Indication: TOOTHACHE
     Route: 048
     Dates: start: 20101011, end: 20101012
  2. AMOXICILLIN TRIHYDRATE [Suspect]
     Indication: TOOTHACHE
     Route: 048
     Dates: start: 20101011, end: 20101012
  3. ACETAMINOPHEN [Suspect]
     Indication: TOOTHACHE
     Route: 065
     Dates: start: 20101011, end: 20101012

REACTIONS (1)
  - ABDOMINAL PAIN UPPER [None]
